FAERS Safety Report 15646938 (Version 1)
Quarter: 2018Q4

REPORT INFORMATION
  Report Type: Spontaneous
  Country: US (occurrence: US)
  Receive Date: 20181122
  Receipt Date: 20181122
  Transmission Date: 20190205
  Serious: No
  Sender: FDA-Public Use
  Company Number: US-HTU-2018US017591

PATIENT
  Sex: Female

DRUGS (1)
  1. VALCHLOR [Suspect]
     Active Substance: MECHLORETHAMINE
     Indication: MYCOSIS FUNGOIDES
     Dosage: THIN FILM TO AFFECTED SKIN, DAILY
     Route: 061
     Dates: start: 20180724

REACTIONS (5)
  - Rhinitis allergic [Unknown]
  - Skin irritation [Not Recovered/Not Resolved]
  - Pruritus [Not Recovered/Not Resolved]
  - Application site discolouration [Unknown]
  - Skin discolouration [Unknown]
